FAERS Safety Report 7809695-3 (Version None)
Quarter: 2011Q4

REPORT INFORMATION
  Report Type: 
  Country: None (occurrence: None)
  Receive Date: 20111012
  Receipt Date: 20111005
  Transmission Date: 20120403
  Serious: Yes (Hospitalization)
  Sender: FDA-Public Use
  Company Number: US-GLAXOSMITHKLINE-A0948659A

PATIENT
  Age: 35 Year
  Sex: Female

DRUGS (3)
  1. LASIX [Concomitant]
     Dosage: 20MG UNKNOWN
     Route: 048
  2. REVATIO [Concomitant]
     Dosage: 20MG UNKNOWN
     Route: 048
  3. FLOLAN [Suspect]
     Indication: LUNG DISORDER
     Dosage: 14NGKM UNKNOWN
     Route: 042
     Dates: start: 20100813

REACTIONS (2)
  - PNEUMONIA [None]
  - LIVER TRANSPLANT [None]
